FAERS Safety Report 12381091 (Version 1)
Quarter: 2016Q2

REPORT INFORMATION
  Report Type: Spontaneous
  Country: BR (occurrence: BR)
  Receive Date: 20160518
  Receipt Date: 20160518
  Transmission Date: 20160815
  Serious: Yes (Other)
  Sender: FDA-Public Use
  Company Number: BR-ELI_LILLY_AND_COMPANY-BR201605002753

PATIENT
  Age: 56 Year
  Sex: Male

DRUGS (2)
  1. TADALAFILA [Suspect]
     Active Substance: TADALAFIL
     Indication: ERECTILE DYSFUNCTION
     Dosage: 5 MG, EACH EVENING
     Route: 048
     Dates: start: 20160331, end: 20160505
  2. ATENOLOL. [Concomitant]
     Active Substance: ATENOLOL
     Indication: HYPERTENSION
     Dosage: 25 MG, EACH MORNING
     Route: 065

REACTIONS (7)
  - Insomnia [Unknown]
  - Hallucination [Unknown]
  - Negative thoughts [Unknown]
  - Anxiety [Unknown]
  - Nightmare [Unknown]
  - Back pain [Unknown]
  - Drug ineffective [Unknown]
